FAERS Safety Report 10512908 (Version 3)
Quarter: 2014Q4

REPORT INFORMATION
  Report Type: Report from Study
  Country: DE (occurrence: DE)
  Receive Date: 20141013
  Receipt Date: 20141030
  Transmission Date: 20150528
  Serious: Yes (Death)
  Sender: FDA-Public Use
  Company Number: DE-ROCHE-1471983

PATIENT
  Sex: Male

DRUGS (8)
  1. DEXAMETHASONE. [Suspect]
     Active Substance: DEXAMETHASONE
     Indication: MALIGNANT LYMPHOID NEOPLASM
     Dosage: LAST CYCLE IN /JUN/2014
     Route: 065
  2. CYTARABINE. [Suspect]
     Active Substance: CYTARABINE
     Indication: MALIGNANT LYMPHOID NEOPLASM
     Dosage: LAST CYCLE IN /JUN/2014
     Route: 065
  3. CISPLATIN. [Suspect]
     Active Substance: CISPLATIN
     Indication: MALIGNANT LYMPHOID NEOPLASM
     Dosage: LAST CYCLE IN /JUN/2014
     Route: 065
  4. AMIODARONE [Concomitant]
     Active Substance: AMIODARONE
     Route: 065
  5. RITUXIMAB [Suspect]
     Active Substance: RITUXIMAB
     Indication: MALIGNANT LYMPHOID NEOPLASM
     Dosage: LAST CYCLE IN /JUN/2014
     Route: 065
  6. VORICONAZOLE. [Concomitant]
     Active Substance: VORICONAZOLE
  7. LINEZOLID. [Concomitant]
     Active Substance: LINEZOLID
  8. MEROPENEM. [Concomitant]
     Active Substance: MEROPENEM

REACTIONS (3)
  - Multi-organ failure [Fatal]
  - Acute kidney injury [Fatal]
  - Septic shock [Fatal]
